FAERS Safety Report 11181398 (Version 4)
Quarter: 2016Q1

REPORT INFORMATION
  Report Type: Report from Study
  Country: CA (occurrence: CA)
  Receive Date: 20150611
  Receipt Date: 20160229
  Transmission Date: 20160525
  Serious: Yes (Death, Hospitalization)
  Sender: FDA-Public Use
  Company Number: CA-TOLMAR, INC.-2015CA005089

PATIENT

DRUGS (15)
  1. ASPIRIN                            /00002701/ [Concomitant]
     Active Substance: ASPIRIN
     Dosage: 81 MG, UNK
     Route: 048
  2. LACTULOSE. [Concomitant]
     Active Substance: LACTULOSE
  3. DOCUSATE [Concomitant]
     Active Substance: DOCUSATE
     Dosage: UNK, DAILY
     Route: 048
  4. NYSTATIN. [Concomitant]
     Active Substance: NYSTATIN
  5. ELIGARD [Suspect]
     Active Substance: LEUPROLIDE ACETATE
     Indication: PROSTATE CANCER
     Dosage: 22.5 MG, Q3MONTHS
     Route: 058
     Dates: start: 20130731
  6. CANDESARTAN [Concomitant]
     Active Substance: CANDESARTAN
     Dosage: UNK, DAILY
     Route: 048
  7. METFORMIN [Concomitant]
     Active Substance: METFORMIN HYDROCHLORIDE
  8. NABILONE [Concomitant]
     Active Substance: NABILONE
     Dosage: UNK, DAILY
     Route: 048
  9. ROSUVASTATIN [Concomitant]
     Active Substance: ROSUVASTATIN
  10. ELIGARD [Suspect]
     Active Substance: LEUPROLIDE ACETATE
     Dosage: 22.5 MG, UNK
     Route: 058
     Dates: start: 20140109
  11. HYDROMORPHONE [Concomitant]
     Active Substance: HYDROMORPHONE
  12. HYDROMORPHONE [Concomitant]
     Active Substance: HYDROMORPHONE
  13. FERROUS FUMARATE [Concomitant]
     Active Substance: FERROUS FUMARATE
     Dosage: UNK, BID
     Route: 048
  14. SENNA                              /00142201/ [Concomitant]
     Active Substance: SENNA LEAF
  15. TRAZODONE [Concomitant]
     Active Substance: TRAZODONE HYDROCHLORIDE
     Route: 048

REACTIONS (1)
  - Haemorrhagic stroke [Fatal]
